FAERS Safety Report 23722008 (Version 1)
Quarter: 2024Q2

REPORT INFORMATION
  Report Type: Spontaneous
  Country: US (occurrence: None)
  Receive Date: 20240408
  Receipt Date: 20240408
  Transmission Date: 20240715
  Serious: Yes (Other)
  Sender: FDA-Public Use
  Company Number: None

PATIENT
  Age: 64 Year
  Sex: Male
  Weight: 91.84 kg

DRUGS (6)
  1. BENZTROPINE [Suspect]
     Active Substance: BENZTROPINE
     Indication: Extrapyramidal disorder
     Dosage: FREQUENCY : DAILY;?
     Route: 048
     Dates: start: 20190927, end: 20240305
  2. AMLODIPINE [Concomitant]
     Active Substance: AMLODIPINE BESYLATE
  3. DIVALPROEX SODIUM [Concomitant]
     Active Substance: DIVALPROEX SODIUM
  4. PALIPERIDONE [Concomitant]
     Active Substance: PALIPERIDONE
  5. ASPIRIN [Concomitant]
     Active Substance: ASPIRIN
  6. TAMSULOSIN [Concomitant]
     Active Substance: TAMSULOSIN

REACTIONS (10)
  - Memory impairment [None]
  - Confusional state [None]
  - Abnormal behaviour [None]
  - White blood cells urine positive [None]
  - Balance disorder [None]
  - Hydronephrosis [None]
  - Cognitive disorder [None]
  - Dizziness [None]
  - Constipation [None]
  - Urinary retention [None]

NARRATIVE: CASE EVENT DATE: 20240209
